FAERS Safety Report 9368806 (Version 1)
Quarter: 2013Q2

REPORT INFORMATION
  Report Type: Spontaneous
  Country: US (occurrence: US)
  Receive Date: 20130626
  Receipt Date: 20130626
  Transmission Date: 20140414
  Serious: Yes (Other)
  Sender: FDA-Public Use
  Company Number: US-ROCHE-1241408

PATIENT
  Age: 51 Year
  Sex: Female

DRUGS (25)
  1. XOLAIR [Suspect]
     Indication: ASTHMA
     Route: 065
  2. HYDROCODONE/ACETAMINOPHEN [Concomitant]
     Dosage: 5/500 MG
     Route: 065
  3. ZOLPIDEM [Concomitant]
     Route: 065
  4. HYDRALAZINE [Concomitant]
  5. CARDIZEM LA [Concomitant]
     Route: 065
  6. SERTRALINE HCL [Concomitant]
  7. NAPROXEN [Concomitant]
     Route: 065
  8. VITAMIN B12 [Concomitant]
  9. REMERON [Concomitant]
  10. KLOR-CON [Concomitant]
  11. LISINOPRIL [Concomitant]
  12. SINGULAIR [Concomitant]
  13. VENTOLIN HFA [Concomitant]
  14. VITAMIN C [Concomitant]
  15. SPIRIVA [Concomitant]
  16. ZYFLO [Concomitant]
  17. PATANOL [Concomitant]
  18. FLAREX [Concomitant]
  19. ALPRAZOLAM [Concomitant]
  20. EPIPEN [Concomitant]
  21. ADVAIR HFA [Concomitant]
  22. ALBUTEROL [Concomitant]
  23. PROTONIX (UNITED STATES) [Concomitant]
  24. RELPAX [Concomitant]
  25. CRANBERRY [Concomitant]

REACTIONS (1)
  - Aortic aneurysm [Unknown]
